FAERS Safety Report 16865009 (Version 3)
Quarter: 2019Q4

REPORT INFORMATION
  Report Type: Spontaneous
  Country: FR (occurrence: FR)
  Receive Date: 20190929
  Receipt Date: 20191107
  Transmission Date: 20200122
  Serious: Yes (Death, Life-Threatening, Hospitalization, Other)
  Sender: FDA-Public Use
  Company Number: FR-AUROBINDO-AUR-APL-2019-061382

PATIENT
  Age: 63 Year
  Sex: Female

DRUGS (4)
  1. VINORELBINE [Concomitant]
     Active Substance: VINORELBINE TARTRATE
     Indication: INVASIVE DUCTAL BREAST CARCINOMA
  2. CAPECITABINE. [Suspect]
     Active Substance: CAPECITABINE
     Indication: BREAST CANCER METASTATIC
     Dosage: 2250 MILLIGRAM, ONCE A DAY
     Route: 048
     Dates: start: 2017
  3. VINORELBINE [Concomitant]
     Active Substance: VINORELBINE TARTRATE
     Indication: BREAST CANCER METASTATIC
     Dosage: 30 MILLIGRAM, DAILY
     Route: 048
     Dates: start: 2017, end: 2017
  4. CAPECITABINE. [Suspect]
     Active Substance: CAPECITABINE
     Indication: INVASIVE DUCTAL BREAST CARCINOMA
     Dosage: 2250 MILLIGRAM, ONCE A DAY
     Route: 048
     Dates: start: 2017

REACTIONS (18)
  - Nausea [Fatal]
  - Cell death [Fatal]
  - Hepatic function abnormal [Fatal]
  - Decreased appetite [Fatal]
  - Erythema [Fatal]
  - Abnormal clotting factor [Fatal]
  - Vomiting [Fatal]
  - Vitamin K decreased [Not Recovered/Not Resolved]
  - Thrombocytopenia [Fatal]
  - Toxicity to various agents [Fatal]
  - Neutropenia [Fatal]
  - General physical condition abnormal [Not Recovered/Not Resolved]
  - Sepsis [Fatal]
  - Palmar-plantar erythrodysaesthesia syndrome [Fatal]
  - Hepatocellular injury [Fatal]
  - Dermatitis exfoliative generalised [Fatal]
  - Mucosal inflammation [Fatal]
  - Renal impairment [Fatal]

NARRATIVE: CASE EVENT DATE: 2017
